FAERS Safety Report 4448455-0 (Version None)
Quarter: 2004Q3

REPORT INFORMATION
  Report Type: 
  Country: None (occurrence: None)
  Receive Date: 20040729
  Receipt Date: 20040519
  Transmission Date: 20050211
  Serious: Yes (Other)
  Sender: FDA-Public Use
  Company Number: US-JNJFOC-20040305467

PATIENT
  Age: 56 Year
  Sex: Female

DRUGS (14)
  1. RISPERDAL CONSTA [Suspect]
     Indication: SCHIZOPHRENIA
     Dosage: 50 MG, 1 IN 2 WEEK, INTRA-MUSCULAR
     Route: 030
     Dates: start: 20040201
  2. LEXAPRO [Concomitant]
  3. CLONAZEPAM [Concomitant]
  4. COGENTIN (BNZATROPINE MESILATE) [Concomitant]
  5. VALIUM [Concomitant]
  6. ZYRTEC [Concomitant]
  7. PREVACID [Concomitant]
  8. CEPHADYN (ALL OTHER THERAPEUTIC PRODUCTS) [Concomitant]
  9. INDOCET (INDOMETACIN) [Concomitant]
  10. DURAGESIC [Concomitant]
  11. ALBUTEROL [Concomitant]
  12. MILK OF MAGNESIA (MAGNESIUM HYDROXIDE) [Concomitant]
  13. SEROQUEL [Concomitant]
  14. ATROVENT [Concomitant]

REACTIONS (6)
  - DYSARTHRIA [None]
  - DYSKINESIA [None]
  - GAIT DISTURBANCE [None]
  - SOMNOLENCE [None]
  - TARDIVE DYSKINESIA [None]
  - WEIGHT INCREASED [None]
